FAERS Safety Report 10453302 (Version 2)
Quarter: 2014Q3

REPORT INFORMATION
  Report Type: Spontaneous
  Country: US (occurrence: US)
  Receive Date: 20140915
  Receipt Date: 20140922
  Transmission Date: 20150326
  Serious: No
  Sender: FDA-Public Use
  Company Number: US-PFIZER INC-2014254423

PATIENT
  Age: 67 Year
  Sex: Female
  Weight: 68 kg

DRUGS (2)
  1. CADUET [Suspect]
     Active Substance: AMLODIPINE BESYLATE\ATORVASTATIN CALCIUM
     Indication: HYPERTENSION
     Dosage: [AMLODIPINE BESILATE 5 MG]/[ ATORVASTATIN 10 MG] TWICE A DAY
  2. LOPID [Concomitant]
     Active Substance: GEMFIBROZIL
     Dosage: UNK

REACTIONS (2)
  - Back pain [Unknown]
  - Drug ineffective [Unknown]
